FAERS Safety Report 11772231 (Version 1)
Quarter: 2015Q4

REPORT INFORMATION
  Report Type: Spontaneous
  Country: US (occurrence: US)
  Receive Date: 20151124
  Receipt Date: 20151124
  Transmission Date: 20160304
  Serious: No
  Sender: FDA-Public Use
  Company Number: US-TEVA-549483USA

PATIENT
  Sex: Female

DRUGS (1)
  1. AZITHROMYCIN [Suspect]
     Active Substance: AZITHROMYCIN ANHYDROUS
     Indication: SINUSITIS BACTERIAL
     Dosage: 200 MG/5 ML DAILY X 5 DAYS
     Route: 048
     Dates: start: 20150317, end: 20150317

REACTIONS (5)
  - Liquid product physical issue [Unknown]
  - Erythema [Unknown]
  - Rash [Not Recovered/Not Resolved]
  - Headache [Unknown]
  - Pruritus [Not Recovered/Not Resolved]
